FAERS Safety Report 9053022 (Version 3)
Quarter: 2013Q2

REPORT INFORMATION
  Report Type: Spontaneous
  Country: US (occurrence: US)
  Receive Date: 20130208
  Receipt Date: 20130509
  Transmission Date: 20140414
  Serious: Yes (Death, Other)
  Sender: FDA-Public Use
  Company Number: US-BIOGENIDEC-2013BI010799

PATIENT
  Sex: Female

DRUGS (1)
  1. AVONEX [Suspect]
     Indication: MULTIPLE SCLEROSIS
     Route: 030
     Dates: start: 20081205

REACTIONS (4)
  - Cardiac failure congestive [Unknown]
  - Dementia [Unknown]
  - Chronic obstructive pulmonary disease [Unknown]
  - Wound sepsis [Fatal]
